FAERS Safety Report 7335179-5 (Version None)
Quarter: 2011Q1

REPORT INFORMATION
  Report Type: 
  Country: None (occurrence: None)
  Receive Date: 20110307
  Receipt Date: 20110224
  Transmission Date: 20110831
  Serious: Yes (Other)
  Sender: FDA-Public Use
  Company Number: US-JNJFOC-20101000842

PATIENT
  Sex: Male
  Weight: 53.2 kg

DRUGS (4)
  1. MESALAMINE [Concomitant]
  2. PREDNISONE [Concomitant]
  3. MERCAPTOPURINE [Concomitant]
  4. INFLIXIMAB, RECOMBINANT [Suspect]
     Indication: INFLAMMATORY BOWEL DISEASE
     Route: 042

REACTIONS (1)
  - LABORATORY TEST ABNORMAL [None]
